FAERS Safety Report 4423670-0 (Version None)
Quarter: 2004Q3

REPORT INFORMATION
  Report Type: 
  Country: None (occurrence: None)
  Receive Date: 20040806
  Receipt Date: 20040719
  Transmission Date: 20050211
  Serious: Yes (Life-Threatening, Hospitalization, Other)
  Sender: FDA-Public Use
  Company Number: EWC040639540

PATIENT
  Age: 78 Year
  Sex: Female
  Weight: 71 kg

DRUGS (4)
  1. FORTEO [Suspect]
     Dosage: 20 UG/DAY
     Dates: start: 20040504, end: 20040602
  2. PREDNISOLONE [Concomitant]
  3. CENTYL MED KALIUMKLORID [Concomitant]
  4. UNIKALK  M. VITAMIN D [Concomitant]

REACTIONS (7)
  - ATRIAL FIBRILLATION [None]
  - CARDIOMEGALY [None]
  - DRY MOUTH [None]
  - DYSPNOEA [None]
  - ELECTROCARDIOGRAM ST SEGMENT DEPRESSION [None]
  - MYOCARDIAL INFARCTION [None]
  - PALPITATIONS [None]
